FAERS Safety Report 9286169 (Version 1)
Quarter: 2013Q2

REPORT INFORMATION
  Report Type: Spontaneous
  Country: US (occurrence: US)
  Receive Date: 20130513
  Receipt Date: 20130513
  Transmission Date: 20140414
  Serious: Yes (Other)
  Sender: FDA-Public Use
  Company Number: US-TEVA-403503USA

PATIENT
  Age: 43 Year
  Sex: Female

DRUGS (1)
  1. PROAIR HFA [Suspect]

REACTIONS (3)
  - Choking [Recovered/Resolved]
  - Presyncope [Recovered/Resolved]
  - Cough [Recovered/Resolved]
